FAERS Safety Report 12555411 (Version 1)
Quarter: 2016Q3

REPORT INFORMATION
  Report Type: Spontaneous
  Country: GB (occurrence: GB)
  Receive Date: 20160714
  Receipt Date: 20160714
  Transmission Date: 20161109
  Serious: Yes (Hospitalization)
  Sender: FDA-Public Use
  Company Number: GB-ACCORD-042286

PATIENT
  Age: 77 Year
  Sex: Female

DRUGS (1)
  1. RAMIPRIL. [Suspect]
     Active Substance: RAMIPRIL
     Indication: HYPERTENSION

REACTIONS (12)
  - Syncope [Unknown]
  - Dizziness [Unknown]
  - Fall [Unknown]
  - Balance disorder [Unknown]
  - Arthralgia [Unknown]
  - Insomnia [Unknown]
  - Sleep disorder [Unknown]
  - Urine output increased [Unknown]
  - Sinusitis [Unknown]
  - Condition aggravated [Unknown]
  - Myalgia [Unknown]
  - Head injury [Unknown]
